FAERS Safety Report 17145078 (Version 2)
Quarter: 2019Q4

REPORT INFORMATION
  Report Type: Spontaneous
  Country: US (occurrence: US)
  Receive Date: 20191212
  Receipt Date: 20191227
  Transmission Date: 20200122
  Serious: Yes (Hospitalization, Other)
  Sender: FDA-Public Use
  Company Number: US-ROCHE-2489518

PATIENT
  Age: 72 Year
  Sex: Male

DRUGS (1)
  1. TECENTRIQ [Suspect]
     Active Substance: ATEZOLIZUMAB
     Indication: SMALL CELL LUNG CANCER
     Route: 065
     Dates: start: 20191004, end: 20191108

REACTIONS (7)
  - Cardiovascular disorder [Unknown]
  - Electrocardiogram change [Recovered/Resolved]
  - Electrocardiogram abnormal [Unknown]
  - Tachycardia [Recovered/Resolved]
  - Pruritus [Recovered/Resolved]
  - Hyperhidrosis [Unknown]
  - Infusion related reaction [Unknown]

NARRATIVE: CASE EVENT DATE: 20191108
